FAERS Safety Report 4850818-6 (Version None)
Quarter: 2005Q4

REPORT INFORMATION
  Report Type: 
  Country: None (occurrence: None)
  Receive Date: 20051212
  Receipt Date: 20051128
  Transmission Date: 20060501
  Serious: Yes (Hospitalization)
  Sender: FDA-Public Use
  Company Number: NL-JNJFOC-20051201902

PATIENT
  Age: 70 Year
  Sex: Female

DRUGS (1)
  1. DURAGESIC-100 [Suspect]
     Indication: DRUG USE FOR UNKNOWN INDICATION
     Route: 062

REACTIONS (6)
  - DEHYDRATION [None]
  - DISORIENTATION [None]
  - DRUG DISPENSING ERROR [None]
  - GASTROINTESTINAL DISORDER [None]
  - OVERDOSE [None]
  - VOMITING [None]
